FAERS Safety Report 4276268-1 (Version None)
Quarter: 2004Q1

REPORT INFORMATION
  Report Type: 
  Country: None (occurrence: None)
  Receive Date: 20040121
  Receipt Date: 20020117
  Transmission Date: 20041129
  Serious: Yes (Hospitalization)
  Sender: FDA-Public Use
  Company Number: DE-ROCHE-305443

PATIENT
  Age: 33 Year
  Sex: Female
  Weight: 74 kg

DRUGS (17)
  1. DACLIZUMAB [Suspect]
     Route: 042
     Dates: start: 20010801, end: 20010801
  2. DACLIZUMAB [Suspect]
     Route: 042
     Dates: start: 20010814, end: 20010925
  3. MYCOPHENOLATE MOFETIL [Suspect]
     Route: 048
     Dates: start: 20010801, end: 20020116
  4. BENALAPRIL [Concomitant]
     Dates: start: 20010911, end: 20020222
  5. CONCOR [Concomitant]
     Dates: start: 20010801
  6. NORVASC [Concomitant]
     Dates: start: 20010801, end: 20020130
  7. FUROSEMIDE [Concomitant]
     Dates: start: 20010801, end: 20020130
  8. ASPIRIN [Concomitant]
     Dates: start: 20010828
  9. COTRIM [Concomitant]
     Dates: start: 20010801
  10. INSULIN H HOECHST [Concomitant]
     Dates: start: 20010801
  11. INSULIN SEMILENTE [Concomitant]
     Dates: start: 20010801
  12. PANTOZOL [Concomitant]
     Dates: start: 20010810
  13. SORTIS [Concomitant]
     Dates: start: 20010911
  14. CYNT [Concomitant]
     Dates: start: 20010925, end: 20020130
  15. REDUCTO-SPEZIAL [Concomitant]
     Dates: start: 20010925, end: 20020119
  16. DECORTIN H [Concomitant]
     Dates: start: 20011031
  17. SANDIMMUNE [Concomitant]
     Dates: start: 20020110

REACTIONS (4)
  - BLOOD CREATININE INCREASED [None]
  - CYTOMEGALOVIRUS INFECTION [None]
  - DIARRHOEA [None]
  - NEPHRITIS [None]
